FAERS Safety Report 4895120-1 (Version None)
Quarter: 2006Q1

REPORT INFORMATION
  Report Type: 
  Country: None (occurrence: None)
  Receive Date: 20060130
  Receipt Date: 20060110
  Transmission Date: 20060701
  Serious: Yes (Hospitalization)
  Sender: FDA-Public Use
  Company Number: 2006CG00089

PATIENT
  Sex: Female

DRUGS (2)
  1. DIPRIVAN [Suspect]
     Indication: GENERAL ANAESTHESIA
     Route: 042
     Dates: start: 20060103, end: 20060103
  2. DIPRIVAN [Suspect]
     Route: 042
     Dates: start: 20060101, end: 20060101

REACTIONS (1)
  - VASCULAR PURPURA [None]
